FAERS Safety Report 25436678 (Version 1)
Quarter: 2025Q2

REPORT INFORMATION
  Report Type: Report from Study
  Country: US (occurrence: US)
  Receive Date: 20250615
  Receipt Date: 20250615
  Transmission Date: 20250716
  Serious: Yes (Hospitalization)
  Sender: AMNEAL
  Company Number: US-AMNEAL PHARMACEUTICALS-2025-AMRX-00533

PATIENT
  Sex: Female

DRUGS (1)
  1. OPICAPONE [Suspect]
     Active Substance: OPICAPONE
     Indication: Product used for unknown indication
     Dosage: 50MG 1 CAPSULES,1 /DAY
     Route: 048

REACTIONS (4)
  - Knee operation [Unknown]
  - Tremor [Unknown]
  - Product dose omission issue [Unknown]
  - Product use issue [Unknown]
